FAERS Safety Report 6833915-5 (Version None)
Quarter: 2010Q3

REPORT INFORMATION
  Report Type: 
  Country: None (occurrence: None)
  Receive Date: 20100712
  Receipt Date: 20070406
  Transmission Date: 20110219
  Serious: No
  Sender: FDA-Public Use
  Company Number: US-PFIZER INC-2007028607

PATIENT
  Sex: Female
  Weight: 99.79 kg

DRUGS (5)
  1. CHANTIX [Suspect]
     Indication: SMOKING CESSATION THERAPY
     Dates: start: 20070403
  2. TOPROL-XL [Concomitant]
  3. FUROSEMIDE [Concomitant]
  4. LOTREL [Concomitant]
  5. SYNTHROID [Concomitant]

REACTIONS (6)
  - ABNORMAL DREAMS [None]
  - HEPATIC ENZYME INCREASED [None]
  - INSOMNIA [None]
  - MOOD ALTERED [None]
  - NERVOUSNESS [None]
  - UNEVALUABLE EVENT [None]
